FAERS Safety Report 25720840 (Version 1)
Quarter: 2025Q3

REPORT INFORMATION
  Report Type: Report from Study
  Country: US (occurrence: US)
  Receive Date: 20250825
  Receipt Date: 20250825
  Transmission Date: 20251021
  Serious: Yes (Hospitalization)
  Sender: TAKEDA
  Company Number: US-TAKEDA-2022TUS062272

PATIENT
  Sex: Male

DRUGS (3)
  1. LANADELUMAB [Suspect]
     Active Substance: LANADELUMAB
     Indication: Immune system disorder
     Dosage: 300 MILLIGRAM, Q2WEEKS
     Dates: start: 20220812
  2. LANADELUMAB [Suspect]
     Active Substance: LANADELUMAB
     Dosage: 300 MILLIGRAM, Q2WEEKS
     Dates: start: 202208
  3. LANADELUMAB [Suspect]
     Active Substance: LANADELUMAB

REACTIONS (6)
  - Road traffic accident [Unknown]
  - Weight increased [Unknown]
  - Weight decreased [Unknown]
  - Product availability issue [Unknown]
  - Product dose omission issue [Unknown]
  - Tooth infection [Unknown]
